FAERS Safety Report 9478540 (Version 1)
Quarter: 2013Q3

REPORT INFORMATION
  Report Type: Spontaneous
  Country: JP (occurrence: JP)
  Receive Date: 20130827
  Receipt Date: 20130827
  Transmission Date: 20140515
  Serious: Yes (Other)
  Sender: FDA-Public Use
  Company Number: JP-TEVA-427566ISR

PATIENT
  Age: 7 Decade
  Sex: Female

DRUGS (2)
  1. WARFARIN [Suspect]
     Route: 065
  2. IGURATIMOD [Interacting]
     Dosage: 25 MILLIGRAM DAILY;
     Route: 048

REACTIONS (4)
  - Gingival bleeding [Recovered/Resolved]
  - Haemorrhage subcutaneous [Recovered/Resolved]
  - Anaemia [Recovered/Resolved]
  - Drug interaction [Recovered/Resolved]
